FAERS Safety Report 5515634-0 (Version None)
Quarter: 2007Q4

REPORT INFORMATION
  Report Type: 
  Country: None (occurrence: None)
  Receive Date: 20071113
  Receipt Date: 20070912
  Transmission Date: 20080405
  Serious: No
  Sender: FDA-Public Use
  Company Number: A0664331A

PATIENT
  Age: 70 Year
  Sex: Male

DRUGS (6)
  1. COREG [Suspect]
     Indication: HYPERTENSION
     Dosage: 12.5MG TWICE PER DAY
     Route: 048
  2. HYDROCHLOROTHIAZIDE [Concomitant]
  3. COZAAR [Concomitant]
  4. FELODIPINE [Concomitant]
  5. ASPIRIN [Concomitant]
  6. LOVASTATIN [Concomitant]

REACTIONS (1)
  - DRUG INEFFECTIVE [None]
